FAERS Safety Report 19434201 (Version 1)
Quarter: 2021Q2

REPORT INFORMATION
  Report Type: Spontaneous
  Country: US (occurrence: US)
  Receive Date: 20210617
  Receipt Date: 20210617
  Transmission Date: 20210717
  Serious: No
  Sender: FDA-Public Use
  Company Number: US-ROCHE-2595361

PATIENT
  Sex: Female

DRUGS (4)
  1. ACTEMRA [Suspect]
     Active Substance: TOCILIZUMAB
  2. ACTEMRA [Suspect]
     Active Substance: TOCILIZUMAB
     Indication: RHEUMATOID ARTHRITIS
     Dosage: EVERY 7 DAYS
     Route: 058
     Dates: start: 202003
  3. ACTEMRA [Suspect]
     Active Substance: TOCILIZUMAB
     Route: 058
     Dates: start: 20200303
  4. ACTEMRA [Suspect]
     Active Substance: TOCILIZUMAB

REACTIONS (3)
  - Joint swelling [Recovering/Resolving]
  - Swelling [Recovering/Resolving]
  - Periorbital swelling [Recovering/Resolving]
